FAERS Safety Report 20023724 (Version 1)
Quarter: 2021Q4

REPORT INFORMATION
  Report Type: Spontaneous
  Country: US (occurrence: US)
  Receive Date: 20211102
  Receipt Date: 20211102
  Transmission Date: 20220303
  Serious: No
  Sender: FDA-Public Use
  Company Number: US-BTGSP-US-BTGSP-21-0021

PATIENT
  Sex: Male
  Weight: 107 kg

DRUGS (2)
  1. DIGIFAB [Suspect]
     Active Substance: OVINE DIGOXIN IMMUNE FAB
     Indication: Toxicity to various agents
     Dosage: 40 MILLIGRAM, 1 VIAL GIVEN AS A TEST DOSE
     Route: 065
  2. DIGOXIN [Concomitant]
     Active Substance: DIGOXIN
     Indication: Product used for unknown indication
     Dosage: 8 TO 9 MONTHS
     Route: 065

REACTIONS (2)
  - Off label use [Unknown]
  - Underdose [Unknown]
